FAERS Safety Report 7024834-2 (Version None)
Quarter: 2010Q4

REPORT INFORMATION
  Report Type: 
  Country: None (occurrence: None)
  Receive Date: 20101001
  Receipt Date: 20100922
  Transmission Date: 20110411
  Serious: Yes (Other)
  Sender: FDA-Public Use
  Company Number: JP-JNJFOC-20100904675

PATIENT
  Age: 36 Year
  Sex: Female

DRUGS (2)
  1. TOPIRAMATE [Suspect]
     Indication: EPILEPSY
     Route: 065
  2. GABAPENTIN [Suspect]
     Indication: EPILEPSY
     Route: 065

REACTIONS (2)
  - CONDITION AGGRAVATED [None]
  - HEARING IMPAIRED [None]
